FAERS Safety Report 24391714 (Version 1)
Quarter: 2024Q4

REPORT INFORMATION
  Report Type: Spontaneous
  Country: US (occurrence: US)
  Receive Date: 20241003
  Receipt Date: 20241003
  Transmission Date: 20250115
  Serious: Yes (Death, Hospitalization)
  Sender: MYLAN
  Company Number: US-MYLANLABS-2024M1088182

PATIENT
  Age: 75 Year
  Sex: Male

DRUGS (6)
  1. ETOPOSIDE [Suspect]
     Active Substance: ETOPOSIDE
     Indication: Neuroendocrine carcinoma
     Dosage: UNK UNK, CYCLE, RECEIVED 2 CYCLES
     Route: 065
  2. CARBOPLATIN [Suspect]
     Active Substance: CARBOPLATIN
     Indication: Neuroendocrine carcinoma
     Dosage: UNK, CYCLE, RECEIVED 2 CYCLES
     Route: 065
  3. METYRAPONE [Suspect]
     Active Substance: METYRAPONE
     Indication: Ectopic ACTH syndrome
     Dosage: UNK
     Route: 065
  4. METYRAPONE [Suspect]
     Active Substance: METYRAPONE
     Indication: Cushing^s syndrome
  5. ETOMIDATE [Concomitant]
     Active Substance: ETOMIDATE
     Indication: Ectopic ACTH syndrome
     Dosage: UNK, INFUSION
     Route: 065
  6. ETOMIDATE [Concomitant]
     Active Substance: ETOMIDATE
     Indication: Cushing^s syndrome

REACTIONS (6)
  - Drug ineffective [Fatal]
  - Neutropenia [Fatal]
  - Thrombocytopenia [Fatal]
  - Septic shock [Fatal]
  - Pneumocystis jirovecii pneumonia [Fatal]
  - Bacteraemia [Fatal]
